FAERS Safety Report 19981311 (Version 1)
Quarter: 2021Q4

REPORT INFORMATION
  Report Type: Spontaneous
  Country: US (occurrence: US)
  Receive Date: 20211022
  Receipt Date: 20211022
  Transmission Date: 20220303
  Serious: No
  Sender: FDA-Public Use
  Company Number: US-TEVA-2021-US-1967287

PATIENT
  Age: 61 Year
  Sex: Female

DRUGS (1)
  1. QNASL [Suspect]
     Active Substance: BECLOMETHASONE DIPROPIONATE
     Dosage: DOSAGE FORM: NASAL AEROSOL
     Route: 065

REACTIONS (2)
  - Epistaxis [Unknown]
  - Device malfunction [Unknown]

NARRATIVE: CASE EVENT DATE: 20211001
